FAERS Safety Report 12015438 (Version 1)
Quarter: 2016Q1

REPORT INFORMATION
  Report Type: Spontaneous
  Country: US (occurrence: US)
  Receive Date: 20160205
  Receipt Date: 20160205
  Transmission Date: 20160526
  Serious: No
  Sender: FDA-Public Use
  Company Number: US-AMGEN-USASP2015037726

PATIENT
  Age: 43 Year

DRUGS (9)
  1. TAXOTERE [Concomitant]
     Active Substance: DOCETAXEL
     Indication: INVASIVE DUCTAL BREAST CARCINOMA
     Dosage: UNK
     Dates: start: 20140827, end: 20141215
  2. HERCEPTIN [Concomitant]
     Active Substance: TRASTUZUMAB
     Dosage: UNK
     Dates: start: 20140827
  3. TAMOXIFEN [Concomitant]
     Active Substance: TAMOXIFEN
     Dosage: UNK
     Dates: start: 20150211
  4. NOLVADEX                           /00388701/ [Concomitant]
     Active Substance: TAMOXIFEN CITRATE
     Dosage: UNK
     Dates: start: 20150406
  5. TYLENOL [Concomitant]
     Active Substance: ACETAMINOPHEN
     Indication: PREMEDICATION
     Dosage: UNK
  6. PARAPLATIN [Concomitant]
     Active Substance: CARBOPLATIN
     Indication: INVASIVE DUCTAL BREAST CARCINOMA
     Dosage: UNK
     Dates: start: 20140827, end: 20141215
  7. PERJETA [Concomitant]
     Active Substance: PERTUZUMAB
     Dosage: UNK
     Dates: start: 20140827
  8. NEULASTA [Suspect]
     Active Substance: PEGFILGRASTIM
     Indication: PRODUCT USED FOR UNKNOWN INDICATION
     Dosage: UNK
     Route: 065
  9. CLARITIN [Concomitant]
     Active Substance: LORATADINE
     Indication: PREMEDICATION
     Dosage: UNK

REACTIONS (1)
  - Nausea [Unknown]
